FAERS Safety Report 18590080 (Version 1)
Quarter: 2020Q4

REPORT INFORMATION
  Report Type: Spontaneous
  Country: US (occurrence: US)
  Receive Date: 20201208
  Receipt Date: 20201208
  Transmission Date: 20210114
  Serious: No
  Sender: FDA-Public Use
  Company Number: None

PATIENT
  Age: 25 Year
  Sex: Male
  Weight: 81 kg

DRUGS (2)
  1. TRINTELLIX [Suspect]
     Active Substance: VORTIOXETINE HYDROBROMIDE
     Indication: DEPRESSION
     Dates: start: 20171101, end: 20201121
  2. TRINTELLIX [Suspect]
     Active Substance: VORTIOXETINE HYDROBROMIDE
     Indication: ANXIETY
     Dates: start: 20171101, end: 20201121

REACTIONS (5)
  - Irritability [None]
  - Hypomania [None]
  - Hyperarousal [None]
  - Therapy cessation [None]
  - Anger [None]

NARRATIVE: CASE EVENT DATE: 20201207
